FAERS Safety Report 5011326-5 (Version None)
Quarter: 2006Q2

REPORT INFORMATION
  Report Type: 
  Country: None (occurrence: None)
  Receive Date: 20060404
  Receipt Date: 20060105
  Transmission Date: 20061013
  Serious: No
  Sender: FDA-Public Use
  Company Number: US200601000874

PATIENT
  Age: 38 Year
  Sex: Female

DRUGS (10)
  1. CYMBALTA [Suspect]
     Indication: DEPRESSION
     Dosage: 60 MG, DAILY (1/D)
     Dates: start: 20060104
  2. PROZAC [Suspect]
     Indication: DEPRESSION
     Dates: start: 19960101, end: 19960101
  3. LEXAPRO /USA/ (ESCITALOPRAM) [Concomitant]
  4. KLONOPIN [Concomitant]
  5. TOPAMAX /AUS/ (TOPIRAMATE) [Concomitant]
  6. ZYRTEC [Concomitant]
  7. SOMA COMPOUND (CAFFEINE, CARISOPRODOL, PHENACETIN) [Concomitant]
  8. ULTRAM [Concomitant]
  9. SYNTHROID [Concomitant]
  10. WELLBUTRIN [Concomitant]

REACTIONS (4)
  - AGGRESSION [None]
  - IRRITABILITY [None]
  - PRURITUS GENERALISED [None]
  - URTICARIA [None]
